FAERS Safety Report 8149185-4 (Version None)
Quarter: 2012Q1

REPORT INFORMATION
  Report Type: 
  Country: None (occurrence: None)
  Receive Date: 20120218
  Receipt Date: 20110913
  Transmission Date: 20120608
  Serious: No
  Sender: FDA-Public Use
  Company Number: US-ALLERGAN-1112159US

PATIENT
  Age: 37 Year
  Sex: Female

DRUGS (2)
  1. BOTOX COSMETIC [Suspect]
     Indication: SKIN WRINKLING
     Dosage: 20 UNITS, SINGLE
     Route: 030
     Dates: start: 20110506, end: 20110506
  2. BOTOX COSMETIC [Suspect]
     Dosage: 8 UNITS, SINGLE
     Route: 030
     Dates: start: 20110818, end: 20110818

REACTIONS (4)
  - LACRIMATION INCREASED [None]
  - VIITH NERVE PARALYSIS [None]
  - FACIAL PARESIS [None]
  - LAGOPHTHALMOS [None]
